FAERS Safety Report 10540026 (Version 2)
Quarter: 2014Q4

REPORT INFORMATION
  Report Type: Report from Study
  Country: IN (occurrence: IN)
  Receive Date: 20141024
  Receipt Date: 20141104
  Transmission Date: 20150529
  Serious: Yes (Death, Other)
  Sender: FDA-Public Use
  Company Number: IN-BRISTOL-MYERS SQUIBB COMPANY-21515598

PATIENT
  Age: 48 Year
  Sex: Male

DRUGS (1)
  1. BARACLUDE [Suspect]
     Active Substance: ENTECAVIR
     Indication: HEPATITIS B
     Route: 048
     Dates: start: 20140113, end: 20140714

REACTIONS (3)
  - Fungal infection [Fatal]
  - Cerebrovascular accident [Unknown]
  - Paralysis [Fatal]
